FAERS Safety Report 8954302 (Version 1)
Quarter: 2012Q4

REPORT INFORMATION
  Report Type: 
  Country: US (occurrence: US)
  Receive Date: 20121207
  Receipt Date: 20121207
  Transmission Date: 20130627
  Serious: Yes (Other)
  Sender: FDA-Public Use
  Company Number: US-TEVA-374114USA

PATIENT
  Age: 68 Year
  Sex: Female

DRUGS (6)
  1. LEVOFLOXACIN [Suspect]
     Indication: PROPHYLAXIS
  2. ATENOLOL [Concomitant]
     Route: 065
  3. AMLODIPINE [Concomitant]
     Route: 065
  4. RABEPRAZOLE [Concomitant]
     Route: 065
  5. DIPHENHYDRAMINE [Concomitant]
     Route: 065
  6. ASPIRIN [Concomitant]
     Dosage: low dose
     Route: 065

REACTIONS (4)
  - Uveitis [Recovering/Resolving]
  - Chorioretinal disorder [Recovering/Resolving]
  - Rash pustular [Unknown]
  - Macule [Unknown]
